FAERS Safety Report 7240768-2 (Version None)
Quarter: 2011Q1

REPORT INFORMATION
  Report Type: 
  Country: None (occurrence: None)
  Receive Date: 20110120
  Receipt Date: 20110120
  Transmission Date: 20110831
  Serious: No
  Sender: FDA-Public Use
  Company Number: None

PATIENT
  Sex: Female
  Weight: 79.3795 kg

DRUGS (1)
  1. NEXIUM [Suspect]
     Indication: ULCER
     Dosage: 40 MG.

REACTIONS (1)
  - VISUAL ACUITY REDUCED [None]
